FAERS Safety Report 24343375 (Version 1)
Quarter: 2024Q3

REPORT INFORMATION
  Report Type: Spontaneous
  Country: CN (occurrence: CN)
  Receive Date: 20240920
  Receipt Date: 20240920
  Transmission Date: 20241016
  Serious: Yes (Hospitalization)
  Sender: JIANGSU HANSOH PHARMACEUTICAL
  Company Number: CN-Jiangsu Hansoh Pharmaceutical Co., Ltd-2161863

PATIENT
  Age: 74 Year
  Sex: Male
  Weight: 65 kg

DRUGS (2)
  1. GEMCITABINE HYDROCHLORIDE [Suspect]
     Active Substance: GEMCITABINE HYDROCHLORIDE
     Indication: Lung neoplasm malignant
     Dates: start: 20240711, end: 20240711
  2. ENDOSTATIN [Concomitant]
     Active Substance: ENDOSTATIN
     Dates: start: 20240706, end: 20240706

REACTIONS (1)
  - Cheilitis [Recovering/Resolving]

NARRATIVE: CASE EVENT DATE: 20240805
